FAERS Safety Report 4290391-7 (Version None)
Quarter: 2004Q1

REPORT INFORMATION
  Report Type: 
  Country: None (occurrence: None)
  Receive Date: 20040206
  Receipt Date: 20040206
  Transmission Date: 20041129
  Serious: No
  Sender: FDA-Public Use
  Company Number: None

PATIENT
  Age: 53 Year
  Sex: Female
  Weight: 58.9676 kg

DRUGS (1)
  1. VIOXX [Suspect]
     Indication: NECK PAIN
     Dosage: 2 TABLET ORAL
     Route: 048
     Dates: start: 20040204, end: 20040205

REACTIONS (4)
  - DERMATITIS EXFOLIATIVE [None]
  - OEDEMA PERIPHERAL [None]
  - SKIN TIGHTNESS [None]
  - SWELLING FACE [None]
